FAERS Safety Report 7133472-2 (Version None)
Quarter: 2010Q4

REPORT INFORMATION
  Report Type: 
  Country: None (occurrence: None)
  Receive Date: 20101202
  Receipt Date: 20101019
  Transmission Date: 20110411
  Serious: Yes (Death, Other)
  Sender: FDA-Public Use
  Company Number: US-BAXTER-2009BH011767

PATIENT
  Age: 74 Year
  Sex: Female
  Weight: 77 kg

DRUGS (46)
  1. HEPARIN SODIUM INJECTION [Suspect]
     Indication: PERITONEAL DIALYSIS
     Route: 065
     Dates: start: 20050325, end: 20051201
  2. HEPARIN SODIUM INJECTION [Suspect]
     Indication: THROMBOSIS PROPHYLAXIS
     Route: 065
     Dates: start: 20050325, end: 20051201
  3. HEPARIN SODIUM INJECTION [Suspect]
     Route: 040
     Dates: start: 20050101
  4. HEPARIN SODIUM INJECTION [Suspect]
     Route: 040
     Dates: start: 20050101
  5. HEPARIN SODIUM INJECTION [Suspect]
     Route: 042
     Dates: start: 20050101
  6. HEPARIN SODIUM INJECTION [Suspect]
     Route: 042
     Dates: start: 20050101
  7. HEPARIN SODIUM INJECTION [Suspect]
     Route: 033
     Dates: start: 20071003, end: 20071003
  8. HEPARIN SODIUM INJECTION [Suspect]
     Route: 033
     Dates: start: 20071003, end: 20071003
  9. HEPARIN SODIUM INJECTION [Suspect]
     Route: 033
     Dates: start: 20050407
  10. HEPARIN SODIUM INJECTION [Suspect]
     Route: 033
     Dates: start: 20050407
  11. HEPARIN SODIUM INJECTION [Suspect]
     Route: 033
     Dates: start: 20080201, end: 20080201
  12. HEPARIN SODIUM INJECTION [Suspect]
     Route: 033
     Dates: start: 20080201, end: 20080201
  13. HEPARIN SODIUM INJECTION [Suspect]
     Route: 033
     Dates: start: 20080311, end: 20080311
  14. HEPARIN SODIUM INJECTION [Suspect]
     Route: 033
     Dates: start: 20080311, end: 20080311
  15. HEPARIN SODIUM INJECTION [Suspect]
     Route: 033
     Dates: start: 20080318, end: 20080318
  16. HEPARIN SODIUM INJECTION [Suspect]
     Route: 033
     Dates: start: 20080318, end: 20080318
  17. DIANEAL [Suspect]
     Indication: PERITONEAL DIALYSIS
     Route: 033
     Dates: start: 20050407, end: 20080716
  18. DIANEAL [Suspect]
     Indication: PERITONEAL DIALYSIS
     Route: 033
     Dates: start: 20050407, end: 20080716
  19. HEPARIN SODIUM INJECTION [Suspect]
     Indication: PRODUCT USED FOR UNKNOWN INDICATION
     Route: 065
  20. HUMULIN N [Concomitant]
     Indication: PRODUCT USED FOR UNKNOWN INDICATION
     Route: 058
  21. PLAVIX [Concomitant]
     Indication: PRODUCT USED FOR UNKNOWN INDICATION
     Route: 048
  22. LEVOTHYROXINE [Concomitant]
     Indication: PRODUCT USED FOR UNKNOWN INDICATION
     Route: 048
  23. PHOSLO [Concomitant]
     Indication: PRODUCT USED FOR UNKNOWN INDICATION
     Route: 048
  24. ZOLOFT [Concomitant]
     Indication: PRODUCT USED FOR UNKNOWN INDICATION
     Route: 048
  25. REGLAN [Concomitant]
     Indication: PRODUCT USED FOR UNKNOWN INDICATION
     Route: 048
  26. PREVACID [Concomitant]
     Indication: PRODUCT USED FOR UNKNOWN INDICATION
     Route: 048
  27. MULTI-VITAMIN [Concomitant]
     Indication: PRODUCT USED FOR UNKNOWN INDICATION
     Route: 048
  28. KLOR-CON [Concomitant]
     Indication: PRODUCT USED FOR UNKNOWN INDICATION
     Route: 048
  29. ASPIRIN [Concomitant]
     Indication: PRODUCT USED FOR UNKNOWN INDICATION
     Route: 048
  30. SENSIPAR [Concomitant]
     Indication: PRODUCT USED FOR UNKNOWN INDICATION
     Route: 048
  31. AMBIEN [Concomitant]
     Indication: PRODUCT USED FOR UNKNOWN INDICATION
     Route: 048
  32. ZEMPLAR [Concomitant]
     Indication: PRODUCT USED FOR UNKNOWN INDICATION
     Route: 048
  33. HEMOCYTE TABLET [Concomitant]
     Indication: PRODUCT USED FOR UNKNOWN INDICATION
     Route: 048
  34. METAMUCIL-2 [Concomitant]
     Indication: PRODUCT USED FOR UNKNOWN INDICATION
     Route: 048
  35. ZOFRAN [Concomitant]
     Indication: PRODUCT USED FOR UNKNOWN INDICATION
     Route: 048
  36. ERYTHROPOIETIN [Concomitant]
     Indication: PRODUCT USED FOR UNKNOWN INDICATION
     Route: 065
  37. NORVASC [Concomitant]
     Indication: PRODUCT USED FOR UNKNOWN INDICATION
     Route: 048
  38. PRILOSEC [Concomitant]
     Indication: PRODUCT USED FOR UNKNOWN INDICATION
     Route: 048
  39. TRUSOPT [Concomitant]
     Indication: PRODUCT USED FOR UNKNOWN INDICATION
     Route: 047
  40. KEFLEX [Concomitant]
     Indication: PRODUCT USED FOR UNKNOWN INDICATION
     Route: 048
  41. STOOL SOFTENER [Concomitant]
     Indication: PRODUCT USED FOR UNKNOWN INDICATION
     Route: 048
  42. PROMETHAZINE [Concomitant]
     Indication: PRODUCT USED FOR UNKNOWN INDICATION
     Route: 065
  43. XANAX [Concomitant]
     Indication: PRODUCT USED FOR UNKNOWN INDICATION
     Route: 065
  44. LOSARTAN [Concomitant]
     Indication: PRODUCT USED FOR UNKNOWN INDICATION
     Route: 065
  45. TOPROL-XL [Concomitant]
     Indication: PRODUCT USED FOR UNKNOWN INDICATION
     Route: 065
  46. MACRODANTIN [Concomitant]
     Indication: PRODUCT USED FOR UNKNOWN INDICATION
     Route: 065

REACTIONS (17)
  - ARRHYTHMIA [None]
  - ASTHENIA [None]
  - CARDIAC FAILURE CONGESTIVE [None]
  - CORONARY ARTERY DISEASE [None]
  - COUGH [None]
  - DIARRHOEA [None]
  - DIZZINESS [None]
  - HEADACHE [None]
  - HYPOTENSION [None]
  - NAUSEA [None]
  - OEDEMA [None]
  - RENAL FAILURE CHRONIC [None]
  - RESTLESSNESS [None]
  - TACHYCARDIA [None]
  - THIRST [None]
  - VOMITING [None]
  - WHEEZING [None]
